FAERS Safety Report 9762771 (Version 1)
Quarter: 2013Q4

REPORT INFORMATION
  Report Type: Spontaneous
  Country: TR (occurrence: TR)
  Receive Date: 20131216
  Receipt Date: 20131216
  Transmission Date: 20140711
  Serious: Yes (Hospitalization)
  Sender: FDA-Public Use
  Company Number: TR-MYLANLABS-2013S1027419

PATIENT
  Age: 29 Year
  Sex: Male

DRUGS (2)
  1. AMPICILLIN + SULBACTAM [Suspect]
     Indication: TONSILLITIS
     Dosage: 1G
     Route: 030
  2. AMOXI-CLAVULANICO [Suspect]
     Indication: TONSILLITIS
     Dosage: 1G
     Route: 048

REACTIONS (1)
  - Kounis syndrome [Recovered/Resolved]
